FAERS Safety Report 5771808-5 (Version None)
Quarter: 2008Q2

REPORT INFORMATION
  Report Type: 
  Country: None (occurrence: None)
  Receive Date: 20080613
  Receipt Date: 20080613
  Transmission Date: 20081010
  Serious: Yes (Hospitalization)
  Sender: FDA-Public Use
  Company Number: None

PATIENT
  Age: 82 Year
  Sex: Male
  Weight: 87 kg

DRUGS (1)
  1. METOLAZONE [Suspect]
     Dosage: 1/2 TAB EVERY DAY PO
     Route: 048
     Dates: start: 20080523, end: 20080531

REACTIONS (2)
  - CONDITION AGGRAVATED [None]
  - GOUT [None]
